FAERS Safety Report 7760227-8 (Version None)
Quarter: 2011Q3

REPORT INFORMATION
  Report Type: 
  Country: None (occurrence: None)
  Receive Date: 20110919
  Receipt Date: 20110913
  Transmission Date: 20111222
  Serious: Yes (Hospitalization)
  Sender: FDA-Public Use
  Company Number: US-GLAXOSMITHKLINE-A0944461A

PATIENT
  Age: 29 Year
  Sex: Female

DRUGS (4)
  1. TREXIMET [Suspect]
     Indication: MIGRAINE
     Route: 048
     Dates: start: 20090101, end: 20110603
  2. KEPPRA [Concomitant]
  3. IBUPROFEN [Suspect]
     Dosage: 800MG TWICE PER DAY
     Dates: start: 20060101
  4. DEPAKOTE [Concomitant]

REACTIONS (2)
  - ULCER HAEMORRHAGE [None]
  - HAEMATEMESIS [None]
